FAERS Safety Report 9414745 (Version 1)
Quarter: 2013Q3

REPORT INFORMATION
  Report Type: Spontaneous
  Country: US (occurrence: US)
  Receive Date: 20130723
  Receipt Date: 20130723
  Transmission Date: 20140515
  Serious: No
  Sender: FDA-Public Use
  Company Number: US-SUCAMPO PHARMA AMERICAS, INC-SPI201300512

PATIENT
  Age: 36 Year
  Sex: Female
  Weight: 78.91 kg

DRUGS (4)
  1. AMITIZA [Suspect]
     Indication: CONSTIPATION
     Dosage: 24 MCG, BID
     Route: 048
     Dates: start: 20120827, end: 20130620
  2. ALBUTEROL [Concomitant]
     Dosage: UNK
     Route: 050
     Dates: start: 201201
  3. EFFEXOR [Concomitant]
     Dosage: UNK
  4. VALTREX [Concomitant]
     Indication: ORAL HERPES
     Dosage: UNK

REACTIONS (4)
  - Anxiety [Recovered/Resolved]
  - Paraesthesia [Recovered/Resolved]
  - Dyspnoea exertional [Recovered/Resolved]
  - Chest discomfort [Recovered/Resolved]
